FAERS Safety Report 6876793-0 (Version None)
Quarter: 2010Q3

REPORT INFORMATION
  Report Type: 
  Country: None (occurrence: None)
  Receive Date: 20100727
  Receipt Date: 20100719
  Transmission Date: 20110219
  Serious: Yes (Hospitalization, Other)
  Sender: FDA-Public Use
  Company Number: PHHY2010HR47110

PATIENT
  Age: 66 Year
  Sex: Female

DRUGS (2)
  1. FLUVASTATIN SODIUM [Suspect]
     Dosage: 80 MG PER DAY
  2. SIROLIMUS [Interacting]

REACTIONS (7)
  - DIALYSIS [None]
  - DIARRHOEA [None]
  - ESCHERICHIA SEPSIS [None]
  - OLIGURIA [None]
  - PYREXIA [None]
  - RENAL FAILURE ACUTE [None]
  - RHABDOMYOLYSIS [None]
